FAERS Safety Report 17900206 (Version 2)
Quarter: 2020Q2

REPORT INFORMATION
  Report Type: Spontaneous
  Country: ES (occurrence: ES)
  Receive Date: 20200616
  Receipt Date: 20200624
  Transmission Date: 20200714
  Serious: Yes (Hospitalization, Other)
  Sender: FDA-Public Use
  Company Number: ES-PFIZER INC-2020230609

PATIENT
  Age: 69 Year
  Sex: Female

DRUGS (3)
  1. OXALIPLATIN. [Suspect]
     Active Substance: OXALIPLATIN
     Indication: COLON CANCER
     Dosage: UNK
  2. FOLINIC ACID [Suspect]
     Active Substance: LEUCOVORIN
     Indication: COLON CANCER
     Dosage: UNK
  3. FLUOROURACIL. [Suspect]
     Active Substance: FLUOROURACIL
     Indication: COLON CANCER
     Dosage: UNK

REACTIONS (11)
  - Progressive multifocal leukoencephalopathy [Unknown]
  - Hemiparesis [Unknown]
  - Bradyphrenia [Unknown]
  - Encephalitis autoimmune [Recovering/Resolving]
  - Hypoaesthesia [Unknown]
  - Dysarthria [Unknown]
  - JC virus infection [Unknown]
  - Quadrantanopia [Unknown]
  - Encephalopathy [Recovering/Resolving]
  - Asthenia [Unknown]
  - Dysphagia [Unknown]
